FAERS Safety Report 21378843 (Version 2)
Quarter: 2022Q4

REPORT INFORMATION
  Report Type: Spontaneous
  Country: CA (occurrence: CA)
  Receive Date: 20220927
  Receipt Date: 20221001
  Transmission Date: 20230113
  Serious: Yes (Other)
  Sender: FDA-Public Use
  Company Number: CA-CELLTRION INC.-2022CA015372

PATIENT

DRUGS (3)
  1. INFLECTRA [Suspect]
     Active Substance: INFLIXIMAB-DYYB
     Indication: Crohn^s disease
     Dosage: 400 MG, INDUCTION WEEKS 0, 2, 6 AND EVERY 8 WEEKS
     Route: 042
     Dates: start: 20220829
  2. INFLECTRA [Suspect]
     Active Substance: INFLIXIMAB-DYYB
     Dosage: 400 MG, INDUCTION WEEKS 0, 2, 6 AND EVERY 8 WEEKS
     Route: 042
     Dates: start: 20220912
  3. METHOTREXATE [Concomitant]
     Active Substance: METHOTREXATE
     Dosage: 1 DF, DOSAGE INFO:  UNKNOWN. DISCONTINUED
     Route: 065

REACTIONS (15)
  - Drug hypersensitivity [Unknown]
  - Blood pressure fluctuation [Unknown]
  - Heart rate irregular [Unknown]
  - Pruritus [Recovered/Resolved]
  - Paraesthesia oral [Recovered/Resolved]
  - Lacrimation increased [Recovered/Resolved]
  - Flushing [Recovered/Resolved]
  - Chills [Recovered/Resolved]
  - Dizziness [Unknown]
  - Somnolence [Not Recovered/Not Resolved]
  - Pain [Unknown]
  - Fatigue [Unknown]
  - Chills [Unknown]
  - Vomiting [Recovered/Resolved]
  - Nausea [Recovered/Resolved]

NARRATIVE: CASE EVENT DATE: 20220912
